FAERS Safety Report 4902274-7 (Version None)
Quarter: 2006Q1

REPORT INFORMATION
  Report Type: 
  Country: None (occurrence: None)
  Receive Date: 20060202
  Receipt Date: 20060124
  Transmission Date: 20060701
  Serious: Yes (Other)
  Sender: FDA-Public Use
  Company Number: 2005156140

PATIENT
  Sex: Female
  Weight: 83.9154 kg

DRUGS (5)
  1. RELPAX [Suspect]
     Indication: MIGRAINE
     Dosage: 40 MG (40 MG, 1 IN 1 D), ORAL
     Route: 048
     Dates: start: 20050101
  2. OXYCODONE HCL [Concomitant]
  3. OXYCONTIN [Concomitant]
  4. VALIUM [Concomitant]
  5. ESTRACE [Concomitant]

REACTIONS (18)
  - AURA [None]
  - BLINDNESS [None]
  - BLOOD TRIGLYCERIDES INCREASED [None]
  - CLUSTER HEADACHE [None]
  - EARLY MORNING AWAKENING [None]
  - HIGH DENSITY LIPOPROTEIN INCREASED [None]
  - LIMB INJURY [None]
  - LIPIDS ABNORMAL [None]
  - NASAL CONGESTION [None]
  - NERVE INJURY [None]
  - NERVOUS SYSTEM DISORDER [None]
  - ORAL INTAKE REDUCED [None]
  - ORAL SURGERY [None]
  - PAIN [None]
  - TOOTH DISORDER [None]
  - TOOTH INFECTION [None]
  - TOTAL CHOLESTEROL/HDL RATIO DECREASED [None]
  - TOTAL CHOLESTEROL/HDL RATIO INCREASED [None]
